FAERS Safety Report 7087764-6 (Version None)
Quarter: 2010Q4

REPORT INFORMATION
  Report Type: 
  Country: None (occurrence: None)
  Receive Date: 20101108
  Receipt Date: 20101101
  Transmission Date: 20110411
  Serious: Yes (Death, Other)
  Sender: FDA-Public Use
  Company Number: DE-ELI_LILLY_AND_COMPANY-DE201010005931

PATIENT
  Sex: Male

DRUGS (12)
  1. BYETTA [Suspect]
     Indication: TYPE 2 DIABETES MELLITUS
     Dosage: 5 UG, 2/D
     Route: 058
     Dates: start: 20100118, end: 20101013
  2. ALLOPURINOL [Concomitant]
     Dosage: 300 MG, UNK
  3. CLOPIDOGREL [Concomitant]
     Dosage: 75 MG, UNK
  4. DIOVAN HCT [Concomitant]
     Dosage: 160 MG, UNK
  5. LIPOIC ACID [Concomitant]
     Dosage: 600 MG, UNK
  6. LYRICA [Concomitant]
     Dosage: 150 MG, UNK
  7. MAGNA [Concomitant]
     Dosage: 3 MG, UNK
  8. NEORECORMON [Concomitant]
     Dosage: 2000 IU, UNK
  9. OMEPRAZOLE [Concomitant]
     Dosage: 20 MG, UNK
  10. OMNIC [Concomitant]
     Dosage: 0.4 MG, UNK
  11. SPIRIVA [Concomitant]
     Dosage: 1 D/F, DAILY (1/D)
  12. TORASEMID [Concomitant]
     Dosage: 20 MG, UNK

REACTIONS (1)
  - PANCREATITIS [None]
